FAERS Safety Report 15389928 (Version 1)
Quarter: 2018Q3

REPORT INFORMATION
  Report Type: Spontaneous
  Country: US (occurrence: US)
  Receive Date: 20180917
  Receipt Date: 20180917
  Transmission Date: 20181010
  Serious: Yes (Life-Threatening)
  Sender: FDA-Public Use
  Company Number: US-ROCHE-2184922

PATIENT
  Sex: Female

DRUGS (1)
  1. ESBRIET [Suspect]
     Active Substance: PIRFENIDONE
     Indication: IDIOPATHIC PULMONARY FIBROSIS
     Dosage: 3 TABLET BY MOUTH THREE TIMES A DAY: ONGOING: UNKNOWN
     Route: 048
     Dates: start: 20170905

REACTIONS (1)
  - Lung neoplasm malignant [Not Recovered/Not Resolved]
